FAERS Safety Report 19226655 (Version 1)
Quarter: 2021Q2

REPORT INFORMATION
  Report Type: Spontaneous
  Country: CH (occurrence: CH)
  Receive Date: 20210506
  Receipt Date: 20210506
  Transmission Date: 20210717
  Serious: No
  Sender: FDA-Public Use
  Company Number: CH-LUPIN PHARMACEUTICALS INC.-2021-06071

PATIENT
  Age: 57 Year
  Sex: Female

DRUGS (5)
  1. TRIAMCINOLONE ACETONIDE. [Suspect]
     Active Substance: TRIAMCINOLONE ACETONIDE
     Indication: NAIL RIDGING
     Dosage: 10 MILLIGRAM PER MILLILITRE
     Route: 026
  2. METHOTREXATE. [Suspect]
     Active Substance: METHOTREXATE
     Indication: ALOPECIA UNIVERSALIS
     Dosage: 15?30 MILLIGRAM PER WEEK
     Route: 065
  3. ALITRETINOIN [Suspect]
     Active Substance: ALITRETINOIN
     Indication: NAIL RIDGING
     Dosage: 30 MILLIGRAM, QD
     Route: 065
  4. DEXAMETHASONE. [Suspect]
     Active Substance: DEXAMETHASONE
     Indication: ALOPECIA AREATA
     Dosage: UNK,MINI PULSES
     Route: 048
  5. CLOBETASOL [Suspect]
     Active Substance: CLOBETASOL
     Indication: ALOPECIA AREATA
     Dosage: UNK, CREAM
     Route: 065

REACTIONS (1)
  - Drug ineffective [Unknown]
